FAERS Safety Report 10013875 (Version 1)
Quarter: 2014Q1

REPORT INFORMATION
  Report Type: Spontaneous
  Country: IT (occurrence: IT)
  Receive Date: 20140316
  Receipt Date: 20140316
  Transmission Date: 20141002
  Serious: Yes (Hospitalization)
  Sender: FDA-Public Use
  Company Number: IT-MYLANLABS-2014S1004976

PATIENT
  Age: 58 Year
  Sex: Female
  Weight: 88 kg

DRUGS (3)
  1. FUROSEMIDE [Suspect]
     Indication: OEDEMA PERIPHERAL
     Dosage: 500 MG DAILY
     Route: 048
     Dates: start: 20121023, end: 20130704
  2. INSULIN LISPRO [Concomitant]
     Indication: PRODUCT USED FOR UNKNOWN INDICATION
  3. INSULIN GLULISINE [Concomitant]
     Indication: PRODUCT USED FOR UNKNOWN INDICATION

REACTIONS (5)
  - Arthralgia [Unknown]
  - Renal failure [Unknown]
  - Dyspnoea [Unknown]
  - Nausea [Unknown]
  - Vomiting [Unknown]
